FAERS Safety Report 12832594 (Version 2)
Quarter: 2021Q3

REPORT INFORMATION
  Report Type: Spontaneous
  Country: US (occurrence: US)
  Receive Date: 20161010
  Receipt Date: 20210817
  Transmission Date: 20211014
  Serious: No
  Sender: FDA-Public Use
  Company Number: US-JAZZ-2016-US-013350

PATIENT
  Age: 52 Year
  Sex: Female

DRUGS (20)
  1. RANITIDINE. [Concomitant]
     Active Substance: RANITIDINE
  2. SALONPAS PAIN RELIEF [Concomitant]
     Active Substance: MENTHOL\METHYL SALICYLATE
  3. DOMPERIDONE [Concomitant]
     Active Substance: DOMPERIDONE
  4. PROZAC [Concomitant]
     Active Substance: FLUOXETINE HYDROCHLORIDE
  5. TONIC WATER [Concomitant]
     Active Substance: QUININE
  6. XYREM [Suspect]
     Active Substance: SODIUM OXYBATE
     Indication: NARCOLEPSY
     Dosage: 2.25 G, BID
     Route: 048
     Dates: start: 201308, end: 201310
  7. LIDODERM [Concomitant]
     Active Substance: LIDOCAINE
  8. PROAIR HFA [Concomitant]
     Active Substance: ALBUTEROL SULFATE
  9. ASPIRIN ADULT [Concomitant]
  10. LEVOFLOXACIN. [Concomitant]
     Active Substance: LEVOFLOXACIN
  11. DEXTROAMPHETAMINE. [Concomitant]
     Active Substance: DEXTROAMPHETAMINE
  12. XIFAXAN [Concomitant]
     Active Substance: RIFAXIMIN
  13. DEXILANT [Concomitant]
     Active Substance: DEXLANSOPRAZOLE
  14. SLOW?MAG [Concomitant]
     Active Substance: MAGNESIUM CHLORIDE
  15. VITAMIN D [Concomitant]
     Active Substance: VITAMIN D NOS
  16. ALVESCO [Concomitant]
     Active Substance: CICLESONIDE
  17. CLARINEX [Concomitant]
     Active Substance: DESLORATADINE
  18. XYREM [Suspect]
     Active Substance: SODIUM OXYBATE
     Dosage: 3 G, BID
     Route: 048
     Dates: start: 201310
  19. FLEXERIL [Concomitant]
     Active Substance: CYCLOBENZAPRINE HYDROCHLORIDE
  20. VITAMIN B12 [Concomitant]
     Active Substance: CYANOCOBALAMIN

REACTIONS (1)
  - Lactose intolerance [Not Recovered/Not Resolved]

NARRATIVE: CASE EVENT DATE: 201506
